FAERS Safety Report 12197717 (Version 1)
Quarter: 2016Q1

REPORT INFORMATION
  Report Type: Spontaneous
  Country: US (occurrence: None)
  Receive Date: 20160321
  Receipt Date: 20160321
  Transmission Date: 20160526
  Serious: Yes (Life-Threatening)
  Sender: FDA-Public Use
  Company Number: None

PATIENT
  Age: 32 Year
  Sex: Female
  Weight: 68.04 kg

DRUGS (3)
  1. WELLBUTRIN [Concomitant]
     Active Substance: BUPROPION HYDROCHLORIDE
  2. CHANTIX [Suspect]
     Active Substance: VARENICLINE TARTRATE
     Indication: SMOKING CESSATION THERAPY
     Dosage: 1 TABLET  DIFFERENT DAY/TIME  TAKEN BY MOUTH
     Route: 048
     Dates: start: 20150927, end: 20151003
  3. ADVIL [Concomitant]
     Active Substance: IBUPROFEN

REACTIONS (6)
  - Dry mouth [None]
  - Dyspnoea [None]
  - Dysphagia [None]
  - Tongue blistering [None]
  - Swollen tongue [None]
  - Oral mucosal blistering [None]

NARRATIVE: CASE EVENT DATE: 20151002
